FAERS Safety Report 16257425 (Version 1)
Quarter: 2019Q2

REPORT INFORMATION
  Report Type: Spontaneous
  Country: US (occurrence: US)
  Receive Date: 20190430
  Receipt Date: 20190430
  Transmission Date: 20190711
  Serious: Yes (Hospitalization)
  Sender: FDA-Public Use
  Company Number: US-FRESENIUS KABI-FK201904810

PATIENT
  Age: 65 Year
  Sex: Female
  Weight: 54.43 kg

DRUGS (1)
  1. DILAUDID [Suspect]
     Active Substance: HYDROMORPHONE HYDROCHLORIDE
     Indication: PAIN
     Route: 042
     Dates: start: 201008, end: 201008

REACTIONS (5)
  - Malaise [Recovered/Resolved]
  - Disorientation [Recovered/Resolved]
  - Intestinal obstruction [Recovered/Resolved]
  - Hallucination [Recovered/Resolved]
  - Weight decreased [Recovered/Resolved]

NARRATIVE: CASE EVENT DATE: 201008
